APPROVED DRUG PRODUCT: SCLEROSOL
Active Ingredient: TALC
Strength: 4GM/SPRAY
Dosage Form/Route: AEROSOL;INTRAPLEURAL
Application: N020587 | Product #001
Applicant: SCIARRA LABORATORIES INC
Approved: Dec 24, 1997 | RLD: Yes | RS: Yes | Type: RX